FAERS Safety Report 8199011-2 (Version None)
Quarter: 2012Q1

REPORT INFORMATION
  Report Type: 
  Country: None (occurrence: None)
  Receive Date: 20120309
  Receipt Date: 20120301
  Transmission Date: 20120608
  Serious: Yes (Hospitalization)
  Sender: FDA-Public Use
  Company Number: US-GLAXOSMITHKLINE-A0899044A

PATIENT
  Age: 64 Year
  Sex: Male
  Weight: 79.1 kg

DRUGS (1)
  1. AVANDIA [Suspect]
     Indication: DIABETES MELLITUS
     Dosage: 4MG PER DAY
     Route: 048
     Dates: start: 20050725, end: 20100201

REACTIONS (4)
  - ACUTE MYOCARDIAL INFARCTION [None]
  - CORONARY ARTERY DISEASE [None]
  - ACUTE CORONARY SYNDROME [None]
  - STENT PLACEMENT [None]
